FAERS Safety Report 15536836 (Version 1)
Quarter: 2018Q4

REPORT INFORMATION
  Report Type: Spontaneous
  Country: US (occurrence: US)
  Receive Date: 20181016
  Receipt Date: 20181016
  Transmission Date: 20190205
  Serious: No
  Sender: FDA-Public Use
  Company Number: None

PATIENT
  Age: 59 Year
  Sex: Female

DRUGS (1)
  1. ENBREL [Suspect]
     Active Substance: ETANERCEPT
     Indication: RHEUMATOID ARTHRITIS
     Dosage: ?          OTHER FREQUENCY:UNKNOWN;?
     Route: 058
     Dates: start: 201602

REACTIONS (6)
  - Inappropriate schedule of product administration [None]
  - Pain in extremity [None]
  - Musculoskeletal pain [None]
  - Neck pain [None]
  - Insurance issue [None]
  - Arthralgia [None]

NARRATIVE: CASE EVENT DATE: 20180923
